FAERS Safety Report 10066343 (Version 1)
Quarter: 2014Q2

REPORT INFORMATION
  Report Type: Spontaneous
  Country: CA (occurrence: CA)
  Receive Date: 20140408
  Receipt Date: 20140408
  Transmission Date: 20141212
  Serious: Yes (Other)
  Sender: FDA-Public Use
  Company Number: CA-BAYER-2014-051022

PATIENT
  Sex: Female

DRUGS (1)
  1. STIVARGA [Suspect]

REACTIONS (1)
  - Metastases to spine [None]
